FAERS Safety Report 5396657-1 (Version None)
Quarter: 2007Q3

REPORT INFORMATION
  Report Type: 
  Country: None (occurrence: None)
  Receive Date: 20070725
  Receipt Date: 20070723
  Transmission Date: 20080115
  Serious: Yes (Hospitalization)
  Sender: FDA-Public Use
  Company Number: B0478924A

PATIENT
  Age: 47 Year
  Sex: Male

DRUGS (4)
  1. COMBIVIR [Suspect]
     Indication: HIV INFECTION
     Dosage: 1TAB TWICE PER DAY
     Route: 048
     Dates: start: 20030306, end: 20061027
  2. COPEGUS [Suspect]
     Indication: HEPATITIS C
     Dosage: 500MG TWICE PER DAY
     Route: 048
     Dates: start: 20060630, end: 20070601
  3. SUSTIVA [Concomitant]
     Indication: HIV INFECTION
     Route: 065
     Dates: start: 20040626
  4. PEGASYS [Concomitant]
     Indication: HEPATITIS C
     Dosage: 180MCG WEEKLY
     Route: 065
     Dates: start: 20060630, end: 20070601

REACTIONS (4)
  - ANAEMIA [None]
  - ASTHENIA [None]
  - BLOOD LACTATE DEHYDROGENASE INCREASED [None]
  - HAEMOGLOBIN DECREASED [None]
